FAERS Safety Report 8146996 (Version 4)
Quarter: 2014Q1

REPORT INFORMATION
  Report Type: Spontaneous
  Country: US (occurrence: US)
  Receive Date: 20110921
  Receipt Date: 20140130
  Transmission Date: 20141002
  Serious: Yes (Hospitalization, Disabling, Other)
  Sender: FDA-Public Use
  Company Number: US-ASTRAZENECA-2011SE54762

PATIENT
  Age: 67 Year
  Sex: Female
  Weight: 67.6 kg

DRUGS (31)
  1. SEROQUEL [Suspect]
     Indication: BIPOLAR DISORDER
     Route: 048
  2. SEROQUEL [Suspect]
     Indication: BIPOLAR I DISORDER
     Route: 048
  3. SEROQUEL [Suspect]
     Indication: DEPRESSION
     Route: 048
  4. SEROQUEL [Suspect]
     Indication: BIPOLAR DISORDER
     Route: 048
  5. SEROQUEL [Suspect]
     Indication: BIPOLAR I DISORDER
     Route: 048
  6. SEROQUEL [Suspect]
     Indication: DEPRESSION
     Route: 048
  7. SEROQUEL [Suspect]
     Indication: BIPOLAR DISORDER
     Route: 048
  8. SEROQUEL [Suspect]
     Indication: BIPOLAR I DISORDER
     Route: 048
  9. SEROQUEL [Suspect]
     Indication: DEPRESSION
     Route: 048
  10. SEROQUEL [Suspect]
     Indication: BIPOLAR DISORDER
     Route: 048
  11. SEROQUEL [Suspect]
     Indication: BIPOLAR I DISORDER
     Route: 048
  12. SEROQUEL [Suspect]
     Indication: DEPRESSION
     Route: 048
  13. SEROQUEL [Suspect]
     Indication: BIPOLAR DISORDER
     Route: 048
  14. SEROQUEL [Suspect]
     Indication: BIPOLAR I DISORDER
     Route: 048
  15. SEROQUEL [Suspect]
     Indication: DEPRESSION
     Route: 048
  16. OMEPRAZOLE [Suspect]
     Indication: GASTROOESOPHAGEAL REFLUX DISEASE
     Route: 048
  17. LITHIUM [Suspect]
     Indication: MOOD SWINGS
     Route: 048
  18. STATIN [Concomitant]
     Route: 065
  19. PREVACID [Concomitant]
  20. AMBIEN [Concomitant]
     Indication: SLEEP DISORDER
     Dosage: 5MG QHS
     Route: 048
     Dates: start: 2006, end: 2012
  21. AMBIEN [Concomitant]
     Indication: SLEEP DISORDER
     Dosage: 10MG QHS
     Route: 048
     Dates: start: 2012
  22. ATIVAN [Concomitant]
     Indication: ANXIETY
     Dosage: 1MG 1/2 TABLET BID 1 TAB
     Route: 048
     Dates: start: 2011
  23. DEPAKOTE [Concomitant]
     Indication: MOOD SWINGS
     Dosage: 1000MG QHS
     Route: 048
     Dates: start: 2011
  24. LAMICTAL [Concomitant]
     Indication: MOOD SWINGS
     Route: 048
  25. PREDNISONE [Concomitant]
  26. ZOLOFT [Concomitant]
     Indication: DEPRESSION
     Route: 048
     Dates: start: 1994
  27. METHOCARBIMOL [Concomitant]
     Indication: MUSCLE RELAXANT THERAPY
     Dosage: 500MG QHS
     Route: 048
     Dates: start: 2011
  28. MEDROL DOSEPAK [Concomitant]
     Indication: PAIN
     Route: 048
     Dates: start: 201401, end: 201401
  29. TYLENOL 3 [Concomitant]
     Indication: PAIN
     Route: 048
     Dates: start: 201312, end: 201401
  30. NAPROXEN [Concomitant]
     Indication: PAIN
     Route: 048
     Dates: start: 2011
  31. METOPROLOL TARTRATE [Concomitant]
     Indication: BLOOD PRESSURE ABNORMAL
     Dates: start: 2004

REACTIONS (23)
  - Overdose [Unknown]
  - Mental disorder [Unknown]
  - Spinal osteoarthritis [Unknown]
  - Toxicity to various agents [Unknown]
  - Bipolar disorder [Unknown]
  - Mania [Unknown]
  - Malaise [Unknown]
  - Fall [Unknown]
  - Head injury [Unknown]
  - Contusion [Unknown]
  - Drug level increased [Unknown]
  - Bipolar I disorder [Unknown]
  - Hypertension [Unknown]
  - Osteoarthritis [Unknown]
  - Weight decreased [Unknown]
  - Sciatica [Unknown]
  - Hypersomnia [Unknown]
  - Blood glucose increased [Unknown]
  - Somnolence [Unknown]
  - Expired drug administered [Unknown]
  - Off label use [Unknown]
  - Drug dose omission [Unknown]
  - Wrong technique in drug usage process [Unknown]
